FAERS Safety Report 23864182 (Version 1)
Quarter: 2024Q2

REPORT INFORMATION
  Report Type: Report from Study
  Country: US (occurrence: None)
  Receive Date: 20240516
  Receipt Date: 20240516
  Transmission Date: 20240716
  Serious: Yes (Hospitalization, Other)
  Sender: FDA-Public Use
  Company Number: 2024A109467

PATIENT
  Sex: Male
  Weight: 110 kg

DRUGS (11)
  1. FARXIGA [Suspect]
     Active Substance: DAPAGLIFLOZIN PROPANEDIOL
     Route: 048
     Dates: start: 20240125
  2. FARXIGA [Suspect]
     Active Substance: DAPAGLIFLOZIN PROPANEDIOL
     Route: 048
  3. ALLOPURINOL [Concomitant]
     Active Substance: ALLOPURINOL
     Dosage: 1 TABLET,DAILY
     Route: 048
  4. APIXABAN [Concomitant]
     Active Substance: APIXABAN
  5. AMLODIPINE [Concomitant]
     Active Substance: AMLODIPINE BESYLATE
     Route: 048
  6. TENORMIN [Concomitant]
     Active Substance: ATENOLOL
     Route: 048
  7. LIPITOR [Concomitant]
     Active Substance: ATORVASTATIN CALCIUM
     Route: 048
  8. HYDRODIURIL [Concomitant]
     Active Substance: HYDROCHLOROTHIAZIDE
     Route: 048
  9. PRINIVIL [Concomitant]
     Active Substance: LISINOPRIL
     Route: 048
  10. GLUCOPHAGE [Concomitant]
     Active Substance: METFORMIN HYDROCHLORIDE
     Route: 048
  11. VITAMINS [Concomitant]
     Active Substance: VITAMINS
     Route: 048

REACTIONS (12)
  - Deep vein thrombosis [Unknown]
  - Pulmonary embolism [Unknown]
  - Chronic kidney disease [Unknown]
  - Benign prostatic hyperplasia [Unknown]
  - Renal cyst [Unknown]
  - Diabetes mellitus [Unknown]
  - Thrombocytosis [Unknown]
  - Proteinuria [Unknown]
  - Diabetic complication renal [Unknown]
  - Microalbuminuria [Unknown]
  - Hypertension [Unknown]
  - Hyperlipidaemia [Unknown]
